FAERS Safety Report 22165431 (Version 2)
Quarter: 2023Q2

REPORT INFORMATION
  Report Type: Spontaneous
  Country: BR (occurrence: BR)
  Receive Date: 20230403
  Receipt Date: 20230420
  Transmission Date: 20230721
  Serious: Yes (Hospitalization, Other)
  Sender: FDA-Public Use
  Company Number: BR-UCBSA-2023016634

PATIENT
  Sex: Female

DRUGS (15)
  1. VIMPAT [Suspect]
     Active Substance: LACOSAMIDE
     Indication: Epilepsy
     Dosage: 200 MILLIGRAM, 2X/DAY (BID)
     Route: 048
     Dates: start: 20170301
  2. VIMPAT [Suspect]
     Active Substance: LACOSAMIDE
     Dosage: 200 MILLIGRAM, 2X/DAY (BID)
     Route: 048
     Dates: start: 20170301
  3. LACOSAMIDE [Suspect]
     Active Substance: LACOSAMIDE
     Indication: Seizure
     Dosage: UNK
  4. CLOBAZAM [Concomitant]
     Active Substance: CLOBAZAM
     Indication: Seizure
     Dosage: TAKEN 2 TIMES A DAY, ONCE IN THE MORNING AND ONCE AT NIGHT
     Route: 048
  5. KEPPRA [Concomitant]
     Active Substance: LEVETIRACETAM
     Indication: Seizure
     Dosage: 250 MILLIGRAM, 2X/DAY (BID)
     Route: 048
  6. FLUOXETINE [Concomitant]
     Active Substance: FLUOXETINE HYDROCHLORIDE
     Indication: Seizure
     Dosage: 20 MILLIGRAM, 3X/DAY (TID)
     Route: 048
  7. PURAN [Concomitant]
     Active Substance: LEVOTHYROXINE SODIUM
     Indication: Thyroid disorder
     Dosage: 175 MILLIGRAM, ONCE DAILY (QD)
     Route: 048
  8. DOZEMAST [Concomitant]
     Indication: Vitamin B12 decreased
     Dosage: UNK
     Route: 060
  9. CHOLECALCIFEROL [Concomitant]
     Active Substance: CHOLECALCIFEROL
     Indication: Anaemia
     Dosage: UNK
  10. UNSPECIFIED INGREDIENT [Concomitant]
     Active Substance: UNSPECIFIED INGREDIENT
     Indication: Constipation
     Dosage: UNK, 2X/DAY (BID)
  11. DUPHALAC [Concomitant]
     Active Substance: LACTULOSE
     Indication: Constipation
     Dosage: UNK
  12. DRAMAMINE [Concomitant]
     Active Substance: DIMENHYDRINATE
     Indication: Nausea
     Dosage: UNK
  13. OTILONIUM BROMIDE [Concomitant]
     Active Substance: OTILONIUM BROMIDE
     Indication: Intestinal haemorrhage
     Dosage: UNK
  14. DECAFEN [Concomitant]
     Indication: Intestinal haemorrhage
     Dosage: UNK
  15. OMEPRAZOLE [Concomitant]
     Active Substance: OMEPRAZOLE
     Indication: Gastritis
     Dosage: 2 TABLETS PER DAY

REACTIONS (8)
  - Seizure [Not Recovered/Not Resolved]
  - Thrombosis [Unknown]
  - Syncope [Unknown]
  - Pneumonia [Recovered/Resolved]
  - Central nervous system lesion [Unknown]
  - Erythema [Unknown]
  - Product dose omission issue [Unknown]
  - Malaise [Unknown]

NARRATIVE: CASE EVENT DATE: 20180101
